FAERS Safety Report 6064311-9 (Version None)
Quarter: 2009Q1

REPORT INFORMATION
  Report Type: 
  Country: None (occurrence: None)
  Receive Date: 20090203
  Receipt Date: 20090203
  Transmission Date: 20090719
  Serious: Yes (Other)
  Sender: FDA-Public Use
  Company Number: None

PATIENT
  Age: 26 Year
  Sex: Male
  Weight: 88.4514 kg

DRUGS (1)
  1. LAMOTRIGINE [Suspect]
     Indication: EPILEPSY
     Dosage: 300 MG BID PO ~1 MONTH PRIOR TO SZ.
     Route: 048

REACTIONS (5)
  - ANTICONVULSANT DRUG LEVEL DECREASED [None]
  - FEELING ABNORMAL [None]
  - GRAND MAL CONVULSION [None]
  - MUSCLE TWITCHING [None]
  - TREMOR [None]
